FAERS Safety Report 5364221-6 (Version None)
Quarter: 2007Q2

REPORT INFORMATION
  Report Type: 
  Country: None (occurrence: None)
  Receive Date: 20070530
  Receipt Date: 20070104
  Transmission Date: 20071010
  Serious: No
  Sender: FDA-Public Use
  Company Number: 2007PV027870

PATIENT
  Age: 60 Year
  Sex: Female
  Weight: 85.2762 kg

DRUGS (4)
  1. BYETTA [Suspect]
     Indication: DIABETES MELLITUS NON-INSULIN-DEPENDENT
     Dosage: 10 MCG; BID; SC, 5 MCG; BID; SC
     Route: 058
     Dates: start: 20061120, end: 20061219
  2. BYETTA [Suspect]
     Indication: DIABETES MELLITUS NON-INSULIN-DEPENDENT
     Dosage: 10 MCG; BID; SC, 5 MCG; BID; SC
     Route: 058
     Dates: start: 20061220
  3. AMARYL [Suspect]
     Indication: DIABETES MELLITUS NON-INSULIN-DEPENDENT
     Dosage: 3 MG; QD; PO
     Route: 048
     Dates: end: 20061124
  4. ASPIRIN [Concomitant]

REACTIONS (6)
  - BLOOD GLUCOSE DECREASED [None]
  - INJECTION SITE BRUISING [None]
  - INJECTION SITE ERYTHEMA [None]
  - INJECTION SITE PAIN [None]
  - TREMOR [None]
  - WEIGHT DECREASED [None]
